FAERS Safety Report 6575508-3 (Version None)
Quarter: 2010Q1

REPORT INFORMATION
  Report Type: 
  Country: None (occurrence: None)
  Receive Date: 20100208
  Receipt Date: 20100208
  Transmission Date: 20100710
  Serious: Yes (Hospitalization)
  Sender: FDA-Public Use
  Company Number: None

PATIENT
  Sex: Male
  Weight: 84.6 kg

DRUGS (4)
  1. TAXOTERE [Suspect]
     Dosage: 153 MG
  2. CADUET [Concomitant]
  3. LISINOPRIL [Concomitant]
  4. ZOFRAN [Concomitant]

REACTIONS (5)
  - BLOOD SODIUM DECREASED [None]
  - BLOOD UREA INCREASED [None]
  - CHEST PAIN [None]
  - MUSCLE SPASMS [None]
  - ORAL DISORDER [None]
